FAERS Safety Report 21747568 (Version 1)
Quarter: 2022Q4

REPORT INFORMATION
  Report Type: Spontaneous
  Country: GB (occurrence: GB)
  Receive Date: 20221219
  Receipt Date: 20221219
  Transmission Date: 20230113
  Serious: Yes (Life-Threatening, Hospitalization, Disabling)
  Sender: FDA-Public Use
  Company Number: GB-MHRA-MED-202212141447071420-VNKMJ

PATIENT
  Age: 92 Year
  Sex: Female

DRUGS (1)
  1. EYLEA [Suspect]
     Active Substance: AFLIBERCEPT
     Indication: Cystoid macular oedema
     Dosage: UNK, SOLUTION FOR INJECTION
     Route: 031
     Dates: start: 20221025, end: 20221025

REACTIONS (1)
  - Cerebrovascular accident [Recovered/Resolved]

NARRATIVE: CASE EVENT DATE: 20221028
